FAERS Safety Report 16084303 (Version 5)
Quarter: 2019Q2

REPORT INFORMATION
  Report Type: Report from Study
  Country: US (occurrence: US)
  Receive Date: 20190318
  Receipt Date: 20190429
  Transmission Date: 20190711
  Serious: Yes (Other)
  Sender: FDA-Public Use
  Company Number: US-SA-2019SA034171

PATIENT
  Age: 56 Year
  Sex: Female

DRUGS (2)
  1. ALEMTUZUMAB [Suspect]
     Active Substance: ALEMTUZUMAB
     Dosage: 12 MG, QD
     Route: 041
     Dates: start: 20190318, end: 20190320
  2. ALEMTUZUMAB [Suspect]
     Active Substance: ALEMTUZUMAB
     Indication: MULTIPLE SCLEROSIS
     Dosage: 12 MG, QD
     Route: 041

REACTIONS (7)
  - Immune thrombocytopenic purpura [Recovered/Resolved]
  - Contusion [Recovered/Resolved]
  - Multiple sclerosis relapse [Recovered/Resolved]
  - Platelet disorder [Recovered/Resolved]
  - Device dislocation [Recovered/Resolved]
  - Inappropriate schedule of product administration [Unknown]
  - Device leakage [Recovered/Resolved]

NARRATIVE: CASE EVENT DATE: 201810
